FAERS Safety Report 4639173-4 (Version None)
Quarter: 2005Q2

REPORT INFORMATION
  Report Type: 
  Country: None (occurrence: None)
  Receive Date: 20050418
  Receipt Date: 20050405
  Transmission Date: 20051028
  Serious: Yes (Hospitalization)
  Sender: FDA-Public Use
  Company Number: MK200504-0064-1

PATIENT
  Age: 52 Year
  Sex: Female

DRUGS (7)
  1. ANAFRANIL [Suspect]
     Indication: INSOMNIA
     Dosage: ONE TIME
     Dates: start: 20050217, end: 20050217
  2. SILECE [Suspect]
  3. PICOBEN [Suspect]
  4. VEGETAMIN B [Suspect]
  5. ALINAMIN F [Concomitant]
  6. CINAL [Concomitant]
  7. TALION [Concomitant]

REACTIONS (3)
  - ASTHENIA [None]
  - NEUROLEPTIC MALIGNANT SYNDROME [None]
  - OVERDOSE [None]
